FAERS Safety Report 11011075 (Version 1)
Quarter: 2015Q2

REPORT INFORMATION
  Report Type: Report from Study
  Country: US (occurrence: US)
  Receive Date: 20150410
  Receipt Date: 20150410
  Transmission Date: 20150821
  Serious: Yes (Hospitalization)
  Sender: FDA-Public Use
  Company Number: US-GILEAD-2015-0148025

PATIENT
  Age: 72 Year
  Sex: Male
  Weight: 89.8 kg

DRUGS (1)
  1. IDELALISIB [Suspect]
     Active Substance: IDELALISIB
     Indication: HAEMATOLOGICAL MALIGNANCY
     Dosage: 150 MG, BID
     Route: 048
     Dates: start: 20131014, end: 20150326

REACTIONS (1)
  - Hypoxia [Not Recovered/Not Resolved]

NARRATIVE: CASE EVENT DATE: 20150402
